FAERS Safety Report 9469398 (Version 2)
Quarter: 2013Q3

REPORT INFORMATION
  Report Type: Report from Study
  Country: US (occurrence: US)
  Receive Date: 20130821
  Receipt Date: 20130821
  Transmission Date: 20140515
  Serious: Yes (Death)
  Sender: FDA-Public Use
  Company Number: US-MYLANLABS-2013S1017859

PATIENT
  Age: 55 Year
  Sex: Male
  Weight: 68 kg

DRUGS (6)
  1. FLURAZEPAM [Suspect]
     Indication: INSOMNIA
  2. REBIF [Suspect]
     Indication: RELAPSING-REMITTING MULTIPLE SCLEROSIS
     Route: 058
     Dates: start: 20070409, end: 20130417
  3. CLONAZEPAM [Suspect]
     Indication: ANXIETY
     Dosage: 2 DAILY
  4. METOPROLOL [Concomitant]
  5. VIIBRYD [Concomitant]
     Indication: DEPRESSION
  6. SAPHRIS [Concomitant]
     Indication: INSOMNIA

REACTIONS (9)
  - Completed suicide [Fatal]
  - Respiratory arrest [Fatal]
  - Suicide attempt [Unknown]
  - Face injury [Unknown]
  - Depression [Unknown]
  - Overdose [Fatal]
  - Temperature intolerance [Unknown]
  - Visual impairment [Unknown]
  - Multiple sclerosis [Unknown]
